FAERS Safety Report 10011787 (Version 2)
Quarter: 2014Q1

REPORT INFORMATION
  Report Type: Report from Study
  Country: NO (occurrence: NO)
  Receive Date: 20140314
  Receipt Date: 20140314
  Transmission Date: 20141002
  Serious: Yes (Life-Threatening, Hospitalization, Other)
  Sender: FDA-Public Use
  Company Number: NO-BRISTOL-MYERS SQUIBB COMPANY-20455598

PATIENT
  Age: 63 Year
  Sex: Female
  Weight: 72.9 kg

DRUGS (11)
  1. NIVOLUMAB [Suspect]
     Indication: METASTATIC MALIGNANT MELANOMA
     Dosage: 2ND DOSE:16JAN14,?3RD DOSE:29JAN14?4TH DOSE:13FEB?5TH DOSE:27FEB14?RECENT DOSE:26FEB2014
     Route: 042
     Dates: start: 20140102
  2. IPILIMUMAB [Suspect]
     Indication: METASTATIC MALIGNANT MELANOMA
     Dosage: 2ND DOSE:13FEB14
     Route: 042
     Dates: start: 20140102
  3. BLINDED: PLACEBO [Suspect]
     Indication: METASTATIC MALIGNANT MELANOMA
     Dosage: RECENT DOSE NIVOLUMAB:26FEB14?IPILIMUMAB:12FEB14
     Route: 042
     Dates: start: 20140102
  4. METOCLOPRAMIDE [Concomitant]
     Dates: start: 20140113
  5. PANTOPRAZOLE [Concomitant]
  6. PARACETAMOL [Concomitant]
  7. CEFALEXIN [Concomitant]
     Dates: start: 20140305
  8. KALEORID [Concomitant]
     Dates: start: 20140226
  9. PROPANOL [Concomitant]
     Dates: start: 20140117
  10. LEVOTHYROXINE [Concomitant]
     Dates: start: 20140203
  11. ONDANSETRON [Concomitant]
     Dates: start: 20140224

REACTIONS (7)
  - Intestinal perforation [Recovered/Resolved]
  - Ileus paralytic [Unknown]
  - Pneumonitis [Unknown]
  - Lung infiltration [Unknown]
  - Renal failure [Unknown]
  - Pneumothorax [Recovered/Resolved]
  - Pulmonary embolism [Unknown]
